FAERS Safety Report 21784702 (Version 1)
Quarter: 2022Q4

REPORT INFORMATION
  Report Type: Spontaneous
  Country: JP (occurrence: JP)
  Receive Date: 20221227
  Receipt Date: 20221227
  Transmission Date: 20230113
  Serious: Yes (Other)
  Sender: FDA-Public Use
  Company Number: JP-BoehringerIngelheim-2022-BI-209737

PATIENT
  Age: 55 Year
  Sex: Male

DRUGS (7)
  1. AFATINIB [Suspect]
     Active Substance: AFATINIB
     Indication: Lung adenocarcinoma
     Dates: start: 201411
  2. AFATINIB [Suspect]
     Active Substance: AFATINIB
  3. AFATINIB [Suspect]
     Active Substance: AFATINIB
     Dates: end: 201801
  4. NILOTINIB [Suspect]
     Active Substance: NILOTINIB
     Indication: Product used for unknown indication
     Dates: start: 201706
  5. DASA [Concomitant]
     Indication: Lung adenocarcinoma
  6. DASA [Concomitant]
     Indication: Chronic myeloid leukaemia
     Dates: start: 202103
  7. DASA [Concomitant]

REACTIONS (7)
  - Decreased appetite [Unknown]
  - Diarrhoea [Unknown]
  - Chronic myeloid leukaemia [Unknown]
  - Skin toxicity [Unknown]
  - Diarrhoea [Unknown]
  - Skin toxicity [Unknown]
  - Therapeutic product effect incomplete [Unknown]

NARRATIVE: CASE EVENT DATE: 20170101
